FAERS Safety Report 8434527-2 (Version None)
Quarter: 2012Q2

REPORT INFORMATION
  Report Type: 
  Country: None (occurrence: None)
  Receive Date: 20120614
  Receipt Date: 20120606
  Transmission Date: 20120825
  Serious: No
  Sender: FDA-Public Use
  Company Number: US-BIOGENIDEC-2012BI020210

PATIENT
  Age: 56 Year
  Sex: Female

DRUGS (3)
  1. AVONEX [Concomitant]
     Indication: MULTIPLE SCLEROSIS
     Route: 030
     Dates: start: 20090608
  2. TYSABRI [Suspect]
     Indication: MULTIPLE SCLEROSIS
     Route: 042
     Dates: start: 20120328
  3. TYSABRI [Suspect]
     Route: 042
     Dates: start: 20120528, end: 20120531

REACTIONS (4)
  - JOINT STIFFNESS [None]
  - GAIT DISTURBANCE [None]
  - PAIN [None]
  - MUSCULOSKELETAL STIFFNESS [None]
